FAERS Safety Report 16313303 (Version 1)
Quarter: 2019Q2

REPORT INFORMATION
  Report Type: Spontaneous
  Country: US (occurrence: US)
  Receive Date: 20190409
  Receipt Date: 20190409
  Transmission Date: 20190711
  Serious: No
  Sender: FDA-Public Use
  Company Number: None

PATIENT
  Age: 63 Year
  Sex: Female

DRUGS (4)
  1. IBRANCE [Suspect]
     Active Substance: PALBOCICLIB
     Indication: BREAST CANCER
     Dates: start: 201803
  2. LETRAZOLE [Concomitant]
     Active Substance: LETROZOLE
  3. LIVER SUPPORT [Concomitant]
  4. TOCOTREIENOLS [Concomitant]

REACTIONS (6)
  - Vomiting [None]
  - Diarrhoea [None]
  - Peripheral coldness [None]
  - Feeling abnormal [None]
  - Aphasia [None]
  - Nausea [None]

NARRATIVE: CASE EVENT DATE: 20190318
